FAERS Safety Report 13755705 (Version 2)
Quarter: 2017Q3

REPORT INFORMATION
  Report Type: Spontaneous
  Country: US (occurrence: US)
  Receive Date: 20170714
  Receipt Date: 20170714
  Transmission Date: 20171127
  Serious: Yes (Hospitalization, Other)
  Sender: FDA-Public Use
  Company Number: DE-ASTRAZENECA-2017SE70664

PATIENT
  Age: 16 Year
  Sex: Female

DRUGS (4)
  1. IBUPROFEN. [Suspect]
     Active Substance: IBUPROFEN
     Route: 065
  2. OMEPRAZOLE. [Suspect]
     Active Substance: OMEPRAZOLE
     Route: 048
  3. FERROUS SULFATE. [Suspect]
     Active Substance: FERROUS SULFATE
     Dosage: 54 TABLETS
     Route: 048
  4. DIPHENHYDRAMINE. [Suspect]
     Active Substance: DIPHENHYDRAMINE
     Route: 065

REACTIONS (5)
  - Hepatic encephalopathy [Unknown]
  - Intentional overdose [Unknown]
  - Haematemesis [Unknown]
  - Metabolic acidosis [Unknown]
  - Abdominal tenderness [Unknown]
